FAERS Safety Report 17230186 (Version 1)
Quarter: 2020Q1

REPORT INFORMATION
  Report Type: Report from Study
  Country: IT (occurrence: IT)
  Receive Date: 20200103
  Receipt Date: 20200103
  Transmission Date: 20200409
  Serious: Yes (Hospitalization)
  Sender: FDA-Public Use
  Company Number: IT-TEVA-2019-IT-1161407

PATIENT
  Age: 62 Year
  Sex: Female
  Weight: 58 kg

DRUGS (4)
  1. OXALIPLATIN. [Suspect]
     Active Substance: OXALIPLATIN
     Indication: RECTAL ADENOCARCINOMA
     Dosage: 168 MG
     Route: 042
     Dates: start: 20191205, end: 20191205
  2. DEXAMETHASONE. [Concomitant]
     Active Substance: DEXAMETHASONE
     Dosage: 20 MG
     Route: 042
     Dates: start: 20191205, end: 20191205
  3. CHLORPHENAMINE [Concomitant]
     Active Substance: CHLORPHENIRAMINE MALEATE
     Dosage: 10 MG
     Route: 042
     Dates: start: 20191205, end: 20191205
  4. GRANISETRON [Concomitant]
     Active Substance: GRANISETRON
     Dosage: 3 MG
     Route: 042
     Dates: start: 20191205, end: 20191205

REACTIONS (2)
  - Asthenia [Recovered/Resolved]
  - Nausea [Recovered/Resolved]

NARRATIVE: CASE EVENT DATE: 20191205
